FAERS Safety Report 17373370 (Version 1)
Quarter: 2020Q1

REPORT INFORMATION
  Report Type: Spontaneous
  Country: FR (occurrence: FR)
  Receive Date: 20200205
  Receipt Date: 20200205
  Transmission Date: 20200409
  Serious: Yes (Hospitalization)
  Sender: FDA-Public Use
  Company Number: FR-ELI_LILLY_AND_COMPANY-FR202001011808

PATIENT
  Sex: Female
  Weight: 2.87 kg

DRUGS (3)
  1. OLANZAPINE. [Suspect]
     Active Substance: OLANZAPINE
     Indication: SCHIZOPHRENIA
     Route: 064
     Dates: end: 20190111
  2. PRAZEPAM [Suspect]
     Active Substance: PRAZEPAM
     Indication: WITHDRAWAL SYNDROME
     Route: 064
     Dates: end: 20190111
  3. NICORETTE [NICOTINE] [Concomitant]
     Indication: PRODUCT USED FOR UNKNOWN INDICATION

REACTIONS (3)
  - Somnolence neonatal [Recovered/Resolved]
  - Hypotonia neonatal [Recovered/Resolved]
  - Neonatal respiratory distress [Recovered/Resolved]

NARRATIVE: CASE EVENT DATE: 20190111
